FAERS Safety Report 9506665 (Version 1)
Quarter: 2013Q3

REPORT INFORMATION
  Report Type: Spontaneous
  Country: US (occurrence: None)
  Receive Date: 20130905
  Receipt Date: 20130905
  Transmission Date: 20140515
  Serious: Yes (Hospitalization)
  Sender: FDA-Public Use
  Company Number: None

PATIENT
  Age: 71 Year
  Sex: Female
  Weight: 68.3 kg

DRUGS (11)
  1. OFATUMUMAB [Suspect]
     Indication: CHRONIC LYMPHOCYTIC LEUKAEMIA
     Dosage: 1000MG  WEEKLY
     Dates: end: 20130826
  2. HDMP [Suspect]
     Indication: CHRONIC LYMPHOCYTIC LEUKAEMIA
     Dosage: DAYS 1,2,3
     Dates: end: 20130814
  3. ACYCLOVIR [Concomitant]
  4. ATOVAQUONE [Concomitant]
  5. COZAAR [Concomitant]
  6. DILAUDID [Concomitant]
  7. FONDAPARINUX [Concomitant]
  8. GABAPENTIN [Concomitant]
  9. LASIX [Concomitant]
  10. LEVOXYL [Concomitant]
  11. VORICONAZOLE [Concomitant]

REACTIONS (5)
  - Cellulitis [None]
  - Musculoskeletal pain [None]
  - Skin irritation [None]
  - Laceration [None]
  - Erythema [None]
